FAERS Safety Report 9233247 (Version 1)
Quarter: 2013Q2

REPORT INFORMATION
  Report Type: Spontaneous
  Country: US (occurrence: US)
  Receive Date: 20130416
  Receipt Date: 20130416
  Transmission Date: 20140414
  Serious: No
  Sender: FDA-Public Use
  Company Number: US-BANPHARM-20130635

PATIENT
  Age: 86 Year
  Sex: 0
  Weight: 58.51 kg

DRUGS (3)
  1. ALEVE LIQUID GELS 220MG [Suspect]
     Indication: ARTHRITIS
     Dosage: 1 DF, QD,
     Route: 048
     Dates: start: 20120215, end: 20120224
  2. PRAVASTATIN SODIUM [Concomitant]
  3. RAMIPRIL [Concomitant]

REACTIONS (3)
  - Poor peripheral circulation [Recovered/Resolved]
  - Feeling abnormal [Recovered/Resolved]
  - Paraesthesia [Recovered/Resolved]
